FAERS Safety Report 9379546 (Version 2)
Quarter: 2013Q3

REPORT INFORMATION
  Report Type: Spontaneous
  Country: DE (occurrence: DE)
  Receive Date: 20130702
  Receipt Date: 20130702
  Transmission Date: 20140515
  Serious: Yes (Death, Congenital Anomaly)
  Sender: FDA-Public Use
  Company Number: DE-TEVA-414954GER

PATIENT
  Age: 0 Day
  Sex: Male

DRUGS (8)
  1. CISPLATIN [Suspect]
     Route: 065
  2. ETOPOSIDE [Suspect]
     Route: 065
  3. BLEOMYCIN [Suspect]
     Route: 065
  4. BISO LICH [Suspect]
     Route: 064
  5. METOPROLOL [Concomitant]
     Route: 064
  6. L-THYROXIN [Concomitant]
     Route: 064
  7. LACHSOELKAPSELN [Concomitant]
     Route: 064
  8. CENTRUM MATERNA [Concomitant]
     Route: 064

REACTIONS (6)
  - Sirenomelia [Fatal]
  - Renal aplasia [Fatal]
  - Renal dysplasia [Not Recovered/Not Resolved]
  - Anal atresia [Not Recovered/Not Resolved]
  - Congenital large intestinal atresia [Not Recovered/Not Resolved]
  - Pulmonary haemorrhage [Not Recovered/Not Resolved]
